FAERS Safety Report 12831235 (Version 4)
Quarter: 2016Q4

REPORT INFORMATION
  Report Type: Report from Study
  Country: US (occurrence: US)
  Receive Date: 20161008
  Receipt Date: 20161205
  Transmission Date: 20170207
  Serious: Yes (Hospitalization, Other)
  Sender: FDA-Public Use
  Company Number: US-009507513-1610USA001053

PATIENT
  Age: 82 Year
  Sex: Male

DRUGS (1)
  1. PEMBROLIZUMAB. [Suspect]
     Active Substance: PEMBROLIZUMAB
     Indication: HEAD AND NECK CANCER
     Dosage: 200 MG, Q3W
     Route: 042
     Dates: start: 20160922

REACTIONS (14)
  - Cough [Not Recovered/Not Resolved]
  - Blood potassium decreased [Not Recovered/Not Resolved]
  - Heart rate abnormal [Recovering/Resolving]
  - Product use issue [Unknown]
  - Tremor [Unknown]
  - Memory impairment [Recovering/Resolving]
  - Oedema peripheral [Unknown]
  - Oxygen saturation decreased [Unknown]
  - Fatigue [Not Recovered/Not Resolved]
  - General physical health deterioration [Unknown]
  - Agitation [Unknown]
  - Oxygen consumption decreased [Recovered/Resolved]
  - Pneumonia [Unknown]
  - Hyponatraemia [Not Recovered/Not Resolved]

NARRATIVE: CASE EVENT DATE: 201609
